FAERS Safety Report 8296549-4 (Version None)
Quarter: 2012Q2

REPORT INFORMATION
  Report Type: 
  Country: None (occurrence: None)
  Receive Date: 20120418
  Receipt Date: 20120416
  Transmission Date: 20120825
  Serious: Yes (Other)
  Sender: FDA-Public Use
  Company Number: US-ROCHE-1055778

PATIENT
  Age: 87 Year
  Sex: Female

DRUGS (1)
  1. LUCENTIS [Suspect]
     Indication: PRODUCT USED FOR UNKNOWN INDICATION

REACTIONS (6)
  - INFLAMMATION [None]
  - MACULAR DEGENERATION [None]
  - BLINDNESS UNILATERAL [None]
  - OCULAR HYPERAEMIA [None]
  - CHROMATURIA [None]
  - INFECTION [None]
